FAERS Safety Report 6166378-6 (Version None)
Quarter: 2009Q2

REPORT INFORMATION
  Report Type: 
  Country: None (occurrence: None)
  Receive Date: 20090424
  Receipt Date: 20080826
  Transmission Date: 20091009
  Serious: No
  Sender: FDA-Public Use
  Company Number: A0744478A

PATIENT
  Age: 49 Year
  Sex: Female

DRUGS (10)
  1. DEXEDRINE [Suspect]
     Indication: FIBROMYALGIA
     Dosage: 10MG THREE TIMES PER DAY
     Route: 048
  2. BUPROPION HCL [Concomitant]
  3. SEROQUEL [Concomitant]
  4. NEXIUM [Concomitant]
  5. KLONOPIN [Concomitant]
  6. HYDROXYZINE [Concomitant]
  7. OXYCODONE HCL [Concomitant]
  8. MORPHINE SULFATE [Concomitant]
  9. AVINZA [Concomitant]
  10. SOMA [Concomitant]

REACTIONS (1)
  - ANXIETY [None]
